FAERS Safety Report 4840379-X (Version None)
Quarter: 2005Q4

REPORT INFORMATION
  Report Type: 
  Country: None (occurrence: None)
  Receive Date: 20051031
  Receipt Date: 20050617
  Transmission Date: 20060501
  Serious: Yes (Other)
  Sender: FDA-Public Use
  Company Number: PHEH2005US06314

PATIENT
  Age: 81 Year
  Sex: Female
  Weight: 60.9 kg

DRUGS (6)
  1. LESCOL [Suspect]
     Indication: BLOOD CHOLESTEROL
     Dates: end: 20050401
  2. TUMS(CALCIUM CARBONATE) [Suspect]
     Indication: DYSPEPSIA
     Dates: end: 20041001
  3. TUMS(CALCIUM CARBONATE) [Suspect]
     Indication: DYSPEPSIA
     Dates: start: 20050401
  4. NEXIUM [Suspect]
     Indication: DYSPEPSIA
     Dates: start: 20041001, end: 20050401
  5. SYNTHROID [Concomitant]
  6. EYE DROPS [Concomitant]

REACTIONS (2)
  - FAECES DISCOLOURED [None]
  - HEPATIC ENZYME INCREASED [None]
